FAERS Safety Report 6617234-8 (Version None)
Quarter: 2010Q1

REPORT INFORMATION
  Report Type: 
  Country: None (occurrence: None)
  Receive Date: 20100307
  Receipt Date: 20090310
  Transmission Date: 20100710
  Serious: No
  Sender: FDA-Public Use
  Company Number: DE-BAYER-200910617GPV

PATIENT
  Age: 59 Year
  Sex: Female

DRUGS (11)
  1. CAMPATH [Suspect]
     Indication: T-CELL LYMPHOMA
     Dosage: D1-2 EVERY 2 WEEKS
     Route: 058
     Dates: start: 20081212, end: 20081213
  2. PREDNISONE [Suspect]
     Indication: T-CELL LYMPHOMA
     Route: 048
     Dates: start: 20081212, end: 20081216
  3. CYCLOPHOSPHAMIDE [Suspect]
     Indication: T-CELL LYMPHOMA
     Route: 042
     Dates: start: 20081212, end: 20081212
  4. DOXORUBICIN HCL [Suspect]
     Indication: T-CELL LYMPHOMA
     Route: 042
     Dates: start: 20081212, end: 20081212
  5. VINCRISTINE [Suspect]
     Indication: T-CELL LYMPHOMA
     Route: 042
     Dates: start: 20081212, end: 20081212
  6. NEUPOGEN [Suspect]
     Indication: PROPHYLAXIS
     Dosage: 300 ?G/ML
     Route: 058
     Dates: start: 20081217
  7. ALLOPURINOL [Concomitant]
     Indication: PROPHYLAXIS
     Route: 048
     Dates: start: 20081205
  8. TRIMETHOPRIM/SULFAMETHOXAZOL [Concomitant]
     Indication: ANTIFUNGAL PROPHYLAXIS
     Route: 048
     Dates: start: 20081212
  9. FAMCICLOVIR [Concomitant]
     Indication: ANTIVIRAL PROPHYLAXIS
     Dosage: TOTAL DAILY DOSE: 500 MG
     Route: 048
     Dates: start: 20081212
  10. POTASSIUM IODIDE [Concomitant]
     Indication: HYPOTHYROIDISM
     Route: 048
  11. ESOMEPRAZOLE MAGNESIUM [Concomitant]
     Indication: PROPHYLAXIS AGAINST GASTROINTESTINAL ULCER
     Route: 048
     Dates: start: 20081203

REACTIONS (1)
  - SUBILEUS [None]
